FAERS Safety Report 6912229-9 (Version None)
Quarter: 2010Q3

REPORT INFORMATION
  Report Type: 
  Country: None (occurrence: None)
  Receive Date: 20100806
  Receipt Date: 20080119
  Transmission Date: 20110219
  Serious: No
  Sender: FDA-Public Use
  Company Number: US-PFIZER INC-2007092758

PATIENT
  Sex: Male
  Weight: 114.31 kg

DRUGS (4)
  1. DETROL LA [Suspect]
     Indication: BLADDER IRRITATION
     Route: 048
     Dates: start: 20070828, end: 20070909
  2. SPIRONOLACTONE [Concomitant]
  3. FUROSEMIDE [Concomitant]
  4. LISINOPRIL [Concomitant]
     Indication: HYPERTENSION

REACTIONS (1)
  - HYPERKALAEMIA [None]
